FAERS Safety Report 9181894 (Version 1)
Quarter: 2013Q1

REPORT INFORMATION
  Report Type: Spontaneous
  Country: FR (occurrence: FR)
  Receive Date: 20130322
  Receipt Date: 20130322
  Transmission Date: 20140127
  Serious: Yes (Other)
  Sender: FDA-Public Use
  Company Number: FR-PFIZER INC-2013090090

PATIENT
  Age: 7 Year
  Sex: Male

DRUGS (1)
  1. CRIZOTINIB [Suspect]
     Indication: NEUROBLASTOMA
     Dosage: UNK
     Dates: start: 201302

REACTIONS (8)
  - Off label use [Unknown]
  - Convulsion [Recovering/Resolving]
  - Hypertension [Recovering/Resolving]
  - General physical health deterioration [Unknown]
  - Pain [Unknown]
  - Headache [Unknown]
  - Abdominal distension [Unknown]
  - Fatigue [Unknown]
